FAERS Safety Report 5130131-2 (Version None)
Quarter: 2006Q4

REPORT INFORMATION
  Report Type: 
  Country: None (occurrence: None)
  Receive Date: 20061013
  Receipt Date: 20060927
  Transmission Date: 20070319
  Serious: Yes (Hospitalization)
  Sender: FDA-Public Use
  Company Number: US200608004155

PATIENT
  Age: 10 Year
  Sex: Female
  Weight: 23.6 kg

DRUGS (1)
  1. ZYPREXA [Suspect]
     Dates: start: 20020301

REACTIONS (4)
  - ADVERSE DRUG REACTION [None]
  - EXTRAPYRAMIDAL DISORDER [None]
  - MENTAL DISORDER [None]
  - MENTAL STATUS CHANGES [None]
